FAERS Safety Report 4562921-9 (Version None)
Quarter: 2005Q1

REPORT INFORMATION
  Report Type: 
  Country: None (occurrence: None)
  Receive Date: 20050121
  Receipt Date: 20050107
  Transmission Date: 20050727
  Serious: Yes (Death, Other)
  Sender: FDA-Public Use
  Company Number: 200510051GDS

PATIENT
  Age: 30 Year
  Sex: Female

DRUGS (7)
  1. GLUCOBAY [Suspect]
     Indication: OBESITY
     Dosage: 10 MG TOTAL DAILY
     Dates: start: 20040401
  2. HORDEUM VULGARE [Concomitant]
  3. ANTACYANOSIDES [Concomitant]
  4. ADLAC [Concomitant]
  5. INDER [Concomitant]
  6. SENOKOT [Concomitant]
  7. HORDEUM VULGARE [Concomitant]

REACTIONS (9)
  - DEPRESSION [None]
  - DIARRHOEA [None]
  - FATIGUE [None]
  - FEELING ABNORMAL [None]
  - HEPATIC FAILURE [None]
  - OEDEMA [None]
  - PALPITATIONS [None]
  - RENAL FAILURE ACUTE [None]
  - SPEECH DISORDER [None]
